FAERS Safety Report 5600583-X (Version None)
Quarter: 2008Q1

REPORT INFORMATION
  Report Type: 
  Country: None (occurrence: None)
  Receive Date: 20080123
  Receipt Date: 20080111
  Transmission Date: 20080703
  Serious: Yes (Hospitalization)
  Sender: FDA-Public Use
  Company Number: FR-SANOFI-SYNTHELABO-A02200800192

PATIENT
  Sex: Male

DRUGS (12)
  1. STILNOX [Suspect]
     Indication: DRUG USE FOR UNKNOWN INDICATION
     Route: 048
  2. SERESTA [Suspect]
     Indication: DRUG USE FOR UNKNOWN INDICATION
     Route: 048
  3. PREVISCAN [Suspect]
     Indication: DRUG USE FOR UNKNOWN INDICATION
     Route: 048
  4. TRIATEC [Suspect]
     Indication: DRUG USE FOR UNKNOWN INDICATION
     Route: 048
  5. LASIX [Suspect]
     Indication: DRUG USE FOR UNKNOWN INDICATION
     Route: 048
  6. ACTISKENAN [Suspect]
     Indication: DRUG USE FOR UNKNOWN INDICATION
     Dosage: UNK
     Route: 048
  7. LANTUS [Suspect]
     Indication: DIABETES MELLITUS
     Dosage: 26 IU
     Route: 058
  8. INEXIUM [Suspect]
     Indication: DRUG USE FOR UNKNOWN INDICATION
     Route: 048
  9. BACTRIM [Suspect]
     Indication: INFECTION
     Route: 048
  10. FUCIDINE CAP [Suspect]
     Indication: INFECTION
     Route: 048
  11. INFLUENZA VIRUS VACCINE [Suspect]
     Indication: INFLUENZA IMMUNISATION
     Route: 058
     Dates: start: 20071021, end: 20071021
  12. TAHOR [Suspect]
     Indication: INFARCTION
     Route: 048

REACTIONS (2)
  - MYALGIA [None]
  - RHABDOMYOLYSIS [None]
